FAERS Safety Report 18280595 (Version 3)
Quarter: 2020Q4

REPORT INFORMATION
  Report Type: Spontaneous
  Country: US (occurrence: US)
  Receive Date: 20200917
  Receipt Date: 20201211
  Transmission Date: 20210113
  Serious: Yes (Hospitalization)
  Sender: FDA-Public Use
  Company Number: US-SEATTLE GENETICS-2020SGN04135

PATIENT
  Sex: Female

DRUGS (2)
  1. TUKYSA [Suspect]
     Active Substance: TUCATINIB
     Indication: BREAST CANCER FEMALE
     Dosage: UNK
  2. TUKYSA [Suspect]
     Active Substance: TUCATINIB
     Dosage: 300 MG, BID, 7 DAYS ON, THEN 7 DAYS OFF

REACTIONS (4)
  - Aspiration pleural cavity [Unknown]
  - Diarrhoea [Unknown]
  - Pleural effusion [Unknown]
  - Chest tube insertion [Unknown]
